FAERS Safety Report 14713292 (Version 1)
Quarter: 2018Q2

REPORT INFORMATION
  Report Type: Report from Study
  Country: US (occurrence: US)
  Receive Date: 20180404
  Receipt Date: 20180404
  Transmission Date: 20180711
  Serious: Yes (Other)
  Sender: FDA-Public Use
  Company Number: US-ROCHE-2094713

PATIENT

DRUGS (1)
  1. BEVACIZUMAB. [Suspect]
     Active Substance: BEVACIZUMAB
     Indication: PROSTATE CANCER
     Route: 065

REACTIONS (4)
  - Venous injury [Recovered/Resolved]
  - Cellulitis [Recovered/Resolved]
  - Thrombosis [Unknown]
  - Myocardial ischaemia [Recovered/Resolved]
